FAERS Safety Report 8799012 (Version 1)
Quarter: 2012Q4

REPORT INFORMATION
  Report Type: Spontaneous
  Country: US (occurrence: None)
  Receive Date: 20120914
  Receipt Date: 20120914
  Transmission Date: 20130627
  Serious: Yes (Life-Threatening)
  Sender: FDA-Public Use
  Company Number: 1412056

PATIENT
  Age: 66 Year
  Sex: Male

DRUGS (16)
  1. VANCOMYCIN HYDROCHLORIDE [Suspect]
     Route: 050
  2. VANCOMYCIN HYDROCHLORIDE [Suspect]
     Route: 050
  3. VANCOMYCIN HYDROCHLORIDE [Suspect]
     Route: 050
  4. VANCOMYCIN HYDROCHLORIDE [Suspect]
     Route: 050
  5. VANCOMYCIN HYDROCHLORIDE [Suspect]
     Route: 050
  6. VANCOMYCIN HYDROCHLORIDE [Suspect]
     Route: 050
  7. VANCOMYCIN HYDROCHLORIDE [Suspect]
     Route: 050
  8. VANCOMYCIN HYDROCHLORIDE [Suspect]
     Route: 050
  9. VANCOMYCIN HYDROCHLORIDE [Suspect]
     Route: 042
  10. VANCOMYCIN HYDROCHLORIDE [Suspect]
     Route: 042
  11. VANCOMYCIN HYDROCHLORIDE [Suspect]
     Route: 042
  12. VANCOMYCIN HYDROCHLORIDE [Suspect]
     Route: 042
  13. VANCOMYCIN HYDROCHLORIDE [Suspect]
     Route: 042
  14. VANCOMYCIN HYDROCHLORIDE [Suspect]
     Route: 042
  15. VANCOMYCIN HYDROCHLORIDE [Suspect]
     Route: 042
  16. VANCOMYCIN HYDROCHLORIDE [Suspect]
     Route: 042

REACTIONS (5)
  - Respiratory failure [None]
  - Hypercapnia [None]
  - Drug reaction with eosinophilia and systemic symptoms [None]
  - Bronchospasm [None]
  - Renal failure acute [None]
